FAERS Safety Report 25712250 (Version 1)
Quarter: 2025Q3

REPORT INFORMATION
  Report Type: Spontaneous
  Country: GB (occurrence: GB)
  Receive Date: 20250821
  Receipt Date: 20250821
  Transmission Date: 20251020
  Serious: Yes (Other)
  Sender: AMGEN
  Company Number: GB-AMGEN-GBRSP2025162173

PATIENT
  Age: 80 Year
  Sex: Female

DRUGS (2)
  1. PROLIA [Suspect]
     Active Substance: DENOSUMAB
     Indication: Osteoporosis
     Route: 065
     Dates: start: 20250304
  2. FLUCLOXACILLIN [Concomitant]
     Active Substance: FLUCLOXACILLIN
     Dosage: 2000 MILLIGRAM, QD (4X 500MG DAILY)
     Dates: start: 20250718

REACTIONS (9)
  - Renal impairment [Unknown]
  - Erythema [Unknown]
  - Skin tightness [Not Recovered/Not Resolved]
  - Skin weeping [Unknown]
  - Skin burning sensation [Not Recovered/Not Resolved]
  - Skin temperature increased [Unknown]
  - Skin swelling [Recovered/Resolved]
  - Pruritus [Not Recovered/Not Resolved]
  - Pain in extremity [Unknown]

NARRATIVE: CASE EVENT DATE: 20250401
